FAERS Safety Report 24687295 (Version 7)
Quarter: 2025Q1

REPORT INFORMATION
  Report Type: Spontaneous
  Country: US (occurrence: US)
  Receive Date: 20241202
  Receipt Date: 20250214
  Transmission Date: 20250408
  Serious: Yes (Death, Life-Threatening, Other)
  Sender: GILEAD
  Company Number: US-GILEAD-2024-0695582

PATIENT
  Age: 72 Year
  Sex: Male
  Weight: 114 kg

DRUGS (41)
  1. YESCARTA [Suspect]
     Active Substance: AXICABTAGENE CILOLEUCEL
     Indication: Diffuse large B-cell lymphoma
     Route: 042
     Dates: start: 20241111, end: 20241111
  2. DEXTROSE [Concomitant]
     Active Substance: DEXTROSE MONOHYDRATE
     Dates: start: 20241029
  3. INSULIN LISPRO [Concomitant]
     Active Substance: INSULIN LISPRO
     Dates: start: 20241029
  4. ACETAMINOPHEN [Concomitant]
     Active Substance: ACETAMINOPHEN
     Dates: start: 20241029
  5. GABAPENTIN [Concomitant]
     Active Substance: GABAPENTIN
     Dates: start: 20241030
  6. ACYCLOVIR [Concomitant]
     Active Substance: ACYCLOVIR
     Dates: start: 20241030
  7. ENOXAPARIN [Concomitant]
     Active Substance: ENOXAPARIN
     Dates: start: 20241030
  8. LACTULOSE [Concomitant]
     Active Substance: LACTULOSE
     Dates: start: 20241030
  9. ALLOPURINOL [Concomitant]
     Active Substance: ALLOPURINOL
     Dates: start: 20241030
  10. ATORVASTATIN [Concomitant]
     Active Substance: ATORVASTATIN
     Dates: start: 20241030
  11. MORPHINE [Concomitant]
     Active Substance: MORPHINE
     Dates: start: 20241030
  12. ALBUTEROL [Concomitant]
     Active Substance: ALBUTEROL
     Dates: start: 20241030
  13. OXYCODONE [Concomitant]
     Active Substance: OXYCODONE
     Dates: start: 20241031
  14. POLYETHYLENE GLYCOL 3350 [Concomitant]
     Active Substance: POLYETHYLENE GLYCOL 3350
     Dates: start: 20241102
  15. EMPAGLIFLOZIN [Concomitant]
     Active Substance: EMPAGLIFLOZIN
     Dates: start: 20241102
  16. SODIUM CHLORIDE [Concomitant]
     Active Substance: SODIUM CHLORIDE
     Dates: start: 20241106
  17. FLUCONAZOLE [Concomitant]
     Active Substance: FLUCONAZOLE
     Dates: start: 20241106
  18. PENTAMIDINE [Concomitant]
     Active Substance: PENTAMIDINE
     Dates: start: 20241106
  19. FOSAPREPITANT [Concomitant]
     Active Substance: FOSAPREPITANT
     Dates: start: 20241106
  20. ONDANSETRON [Concomitant]
     Active Substance: ONDANSETRON
     Dates: start: 20241106
  21. PROCHLORPERAZINE [Concomitant]
     Active Substance: PROCHLORPERAZINE
     Dates: start: 20241106
  22. CYCLOPHOSPHAMIDE [Concomitant]
     Active Substance: CYCLOPHOSPHAMIDE
     Dates: start: 20241107
  23. SULFAMETHOXAZOLE [Concomitant]
     Active Substance: SULFAMETHOXAZOLE
     Dates: start: 20241109
  24. MEROPENEM [Concomitant]
     Active Substance: MEROPENEM
     Dates: start: 20241129
  25. MIDAZOLAM [Concomitant]
     Active Substance: MIDAZOLAM
     Dates: start: 20241129
  26. VANCOMYCIN [Concomitant]
     Active Substance: VANCOMYCIN
     Dates: start: 20241129
  27. ISAVUCONAZONIUM [Concomitant]
     Active Substance: ISAVUCONAZONIUM
     Dates: start: 20241129
  28. NYSTATIN [Concomitant]
     Active Substance: NYSTATIN
     Dates: start: 20241129
  29. QUETIAPINE FUMARATE [Concomitant]
     Active Substance: QUETIAPINE FUMARATE
     Dates: start: 20241128
  30. FENTANYL [Concomitant]
     Active Substance: FENTANYL
     Dates: start: 20241128
  31. METOPROLOL [Concomitant]
     Active Substance: METOPROLOL
     Dates: start: 20241128
  32. FILGRASTIM [Concomitant]
     Active Substance: FILGRASTIM
     Dates: start: 20241128
  33. POTASSIUM CHLORIDE [Concomitant]
     Active Substance: POTASSIUM CHLORIDE
     Dates: start: 20241127
  34. MAGNESIUM SULFATE [Concomitant]
     Active Substance: MAGNESIUM SULFATE
     Dates: start: 20241127
  35. ATOVAQUONE [Concomitant]
     Active Substance: ATOVAQUONE
     Dates: start: 20241127
  36. DEXMEDETOMIDINE [Concomitant]
     Active Substance: DEXMEDETOMIDINE
     Dates: start: 20241127
  37. INSULIN BEEF [Concomitant]
     Active Substance: INSULIN BEEF
     Dates: start: 20241125
  38. HYPROMELLOSES [Concomitant]
     Active Substance: HYPROMELLOSES
     Dates: start: 20241125
  39. MICAFUNGIN [Concomitant]
     Active Substance: MICAFUNGIN SODIUM
     Dates: start: 20241125
  40. AMIODARONE [Concomitant]
     Active Substance: AMIODARONE
     Dates: start: 20241124
  41. FAMOTIDINE [Concomitant]
     Active Substance: FAMOTIDINE
     Dates: start: 20241124

REACTIONS (6)
  - Immune effector cell-associated neurotoxicity syndrome [Fatal]
  - Endotracheal intubation [Unknown]
  - Thrombocytopenia [Unknown]
  - Death [Fatal]
  - Acute respiratory failure [Fatal]
  - Respiratory tract haemorrhage [Fatal]

NARRATIVE: CASE EVENT DATE: 20241129
